FAERS Safety Report 9663469 (Version 1)
Quarter: 2013Q4

REPORT INFORMATION
  Report Type: Spontaneous
  Country: JP (occurrence: JP)
  Receive Date: 20131101
  Receipt Date: 20131101
  Transmission Date: 20140711
  Serious: Yes (Hospitalization, Other)
  Sender: FDA-Public Use
  Company Number: JP-ACCORD-020150

PATIENT
  Age: 27 Year
  Sex: Female

DRUGS (2)
  1. PACLITAXEL [Suspect]
     Indication: BREAST CANCER STAGE IV
     Dosage: ON DAYS 1, 8, AND 15
  2. BEVACIZUMAB [Suspect]
     Indication: BREAST CANCER STAGE IV
     Dosage: ON DAYS 1 AND 15,

REACTIONS (2)
  - Haemorrhage [Recovered/Resolved]
  - Tumour necrosis [Not Recovered/Not Resolved]
